FAERS Safety Report 5204407-4 (Version None)
Quarter: 2007Q1

REPORT INFORMATION
  Report Type: 
  Country: None (occurrence: None)
  Receive Date: 20070110
  Receipt Date: 20060314
  Transmission Date: 20070707
  Serious: No
  Sender: FDA-Public Use
  Company Number: US-BRISTOL-MYERS SQUIBB COMPANY-13318902

PATIENT
  Age: 46 Year
  Sex: Female

DRUGS (8)
  1. ABILIFY [Suspect]
     Indication: MAJOR DEPRESSION
     Dosage: DOSE WAS REDUCED TO 10 MG/D IN JUN-2005.
     Route: 048
     Dates: start: 20040318, end: 20060306
  2. ABILIFY [Suspect]
     Indication: PSYCHOTIC DISORDER
     Dosage: DOSE WAS REDUCED TO 10 MG/D IN JUN-2005.
     Route: 048
     Dates: start: 20040318, end: 20060306
  3. EFFEXOR XR [Concomitant]
  4. TRAZODONE HCL [Concomitant]
  5. AVANDIA [Concomitant]
  6. THEO-DUR [Concomitant]
  7. DYAZIDE [Concomitant]
  8. DIOVAN [Concomitant]

REACTIONS (4)
  - DYSKINESIA [None]
  - MUSCLE TWITCHING [None]
  - RESTLESSNESS [None]
  - TREMOR [None]
